FAERS Safety Report 6399418-X (Version None)
Quarter: 2009Q4

REPORT INFORMATION
  Report Type: 
  Country: None (occurrence: None)
  Receive Date: 20091014
  Receipt Date: 20091002
  Transmission Date: 20100525
  Serious: Yes (Other)
  Sender: FDA-Public Use
  Company Number: JP-AMGEN-US297912

PATIENT
  Age: 51 Year
  Sex: Female

DRUGS (3)
  1. ENBREL [Suspect]
     Indication: RHEUMATOID ARTHRITIS
     Dosage: 25 MG; UUNSPECIFIED FREQUENCY
     Route: 058
  2. PREDNISOLONE [Concomitant]
     Indication: RHEUMATOID ARTHRITIS
     Dosage: UNPSEICIFIED DOSE; GRADUALLY TAPERED TO 1 MG/DAY
     Route: 048
     Dates: end: 20060901
  3. PREDNISOLONE [Concomitant]

REACTIONS (3)
  - GLAUCOMA [None]
  - SARCOIDOSIS [None]
  - UVEITIS [None]
